FAERS Safety Report 6783993-7 (Version None)
Quarter: 2010Q2

REPORT INFORMATION
  Report Type: 
  Country: None (occurrence: None)
  Receive Date: 20100622
  Receipt Date: 20100614
  Transmission Date: 20101027
  Serious: Yes (Other)
  Sender: FDA-Public Use
  Company Number: HK-ASTRAZENECA-2010SE25058

PATIENT
  Age: 80 Year
  Sex: Female

DRUGS (1)
  1. MARCAINE [Suspect]
     Indication: SPINAL ANAESTHESIA
     Route: 039
     Dates: start: 20100524

REACTIONS (2)
  - ANAESTHETIC COMPLICATION [None]
  - DRUG INEFFECTIVE [None]
